FAERS Safety Report 4616218-9 (Version None)
Quarter: 2005Q1

REPORT INFORMATION
  Report Type: 
  Country: None (occurrence: None)
  Receive Date: 20050321
  Receipt Date: 20050307
  Transmission Date: 20050727
  Serious: Yes (Hospitalization)
  Sender: FDA-Public Use
  Company Number: 2000031190US

PATIENT
  Age: 52 Year
  Sex: Female
  Weight: 59.5573 kg

DRUGS (4)
  1. ROGAINE [Suspect]
     Indication: ALOPECIA
     Dosage: 1 ML BID, TOPICAL
     Route: 061
     Dates: start: 20000922, end: 20000929
  2. ESTRADIOL [Concomitant]
  3. MEDROXYPROGESTERONE [Concomitant]
  4. TRETINOIN [Concomitant]

REACTIONS (15)
  - ANXIETY [None]
  - DEHYDRATION [None]
  - DRY SKIN [None]
  - DYSPEPSIA [None]
  - DYSPNOEA [None]
  - FATIGUE [None]
  - HYPOTENSION [None]
  - MITRAL VALVE INCOMPETENCE [None]
  - MYOCARDIAL INFARCTION [None]
  - NAUSEA [None]
  - RESPIRATORY RATE INCREASED [None]
  - SKIN WARM [None]
  - SUPRAVENTRICULAR TACHYCARDIA [None]
  - THIRST [None]
  - TRICUSPID VALVE INCOMPETENCE [None]
